FAERS Safety Report 20155628 (Version 6)
Quarter: 2022Q4

REPORT INFORMATION
  Report Type: Spontaneous
  Country: NL (occurrence: NL)
  Receive Date: 20211207
  Receipt Date: 20221116
  Transmission Date: 20230112
  Serious: Yes (Death, Other)
  Sender: FDA-Public Use
  Company Number: NL-ELI_LILLY_AND_COMPANY-NL202111011901

PATIENT
  Age: 45 Year
  Sex: Female
  Weight: 72 kg

DRUGS (8)
  1. RETEVMO [Suspect]
     Active Substance: SELPERCATINIB
     Indication: Non-small cell lung cancer
     Dosage: 160 MG, BID
     Route: 048
     Dates: start: 20211105, end: 20211122
  2. RETEVMO [Suspect]
     Active Substance: SELPERCATINIB
     Dosage: 80 MG, UNKNOWN
     Route: 065
     Dates: start: 20211208, end: 20211208
  3. RETEVMO [Suspect]
     Active Substance: SELPERCATINIB
     Dosage: 80 UNK, UNKNOWN
     Route: 065
     Dates: start: 20211215
  4. RETEVMO [Suspect]
     Active Substance: SELPERCATINIB
     Dosage: 40 MG, UNKNOWN
     Route: 065
  5. RETEVMO [Suspect]
     Active Substance: SELPERCATINIB
     Dosage: 80 MG, UNKNOWN
     Route: 065
  6. DEXAMETHASONE ACETATE [Concomitant]
     Active Substance: DEXAMETHASONE ACETATE
     Indication: Product used for unknown indication
     Dosage: 8 MG, UNKNOWN
     Route: 065
  7. DEXAMETHASONE ACETATE [Concomitant]
     Active Substance: DEXAMETHASONE ACETATE
     Dosage: 1 MG, UNKNOWN
     Route: 065
  8. PRALSETINIB [Concomitant]
     Active Substance: PRALSETINIB
     Indication: Non-small cell lung cancer
     Dosage: UNK, UNKNOWN
     Route: 065

REACTIONS (6)
  - Malignant neoplasm progression [Fatal]
  - Pleural effusion [Unknown]
  - Hepatotoxicity [Recovering/Resolving]
  - Headache [Unknown]
  - Nausea [Unknown]
  - Pyrexia [Unknown]

NARRATIVE: CASE EVENT DATE: 20211208
